FAERS Safety Report 6635358-6 (Version None)
Quarter: 2010Q1

REPORT INFORMATION
  Report Type: 
  Country: None (occurrence: None)
  Receive Date: 20100311
  Receipt Date: 20100311
  Transmission Date: 20100710
  Serious: Yes (Other)
  Sender: FDA-Public Use
  Company Number: None

PATIENT
  Age: 30 Year
  Sex: Female
  Weight: 68.4932 kg

DRUGS (2)
  1. BACLOFEN [Suspect]
     Indication: TEMPOROMANDIBULAR JOINT SYNDROME
     Dosage: 10MG QHS PO
     Route: 048
     Dates: start: 20100117, end: 20100120
  2. BACLOFEN [Suspect]
     Indication: TEMPOROMANDIBULAR JOINT SYNDROME
     Dosage: 10MG QHS PO
     Route: 048
     Dates: start: 20100308, end: 20100308

REACTIONS (4)
  - LUNG DISORDER [None]
  - MIGRAINE [None]
  - PRODUCT QUALITY ISSUE [None]
  - TEMPOROMANDIBULAR JOINT SYNDROME [None]
